FAERS Safety Report 16811352 (Version 5)
Quarter: 2019Q4

REPORT INFORMATION
  Report Type: Spontaneous
  Country: US (occurrence: US)
  Receive Date: 20190916
  Receipt Date: 20191227
  Transmission Date: 20200122
  Serious: Yes (Hospitalization, Other)
  Sender: FDA-Public Use
  Company Number: US-PFIZER INC-2019398884

PATIENT
  Age: 67 Year
  Sex: Female
  Weight: 113 kg

DRUGS (1)
  1. TOVIAZ [Suspect]
     Active Substance: FESOTERODINE FUMARATE
     Indication: MICTURITION URGENCY
     Dosage: 4 MG, 1X/DAY
     Route: 048

REACTIONS (7)
  - Fall [Unknown]
  - Drug ineffective [Unknown]
  - Urinary incontinence [Unknown]
  - Malaise [Unknown]
  - Dementia [Unknown]
  - Mental disorder [Unknown]
  - Feeling abnormal [Unknown]
